FAERS Safety Report 9122687 (Version 1)
Quarter: 2013Q1

REPORT INFORMATION
  Report Type: Spontaneous
  Country: US (occurrence: None)
  Receive Date: 20130225
  Receipt Date: 20130225
  Transmission Date: 20140127
  Serious: Yes (Other)
  Sender: FDA-Public Use
  Company Number: None

PATIENT
  Sex: Female
  Weight: 61.24 kg

DRUGS (1)
  1. CORTISONE 40 MG [Suspect]
     Indication: MENISCUS INJURY
     Dates: start: 20130207, end: 20130207

REACTIONS (5)
  - Flushing [None]
  - Nausea [None]
  - Headache [None]
  - Visual impairment [None]
  - Blood pressure increased [None]
